FAERS Safety Report 6119507-4 (Version None)
Quarter: 2009Q1

REPORT INFORMATION
  Report Type: 
  Country: None (occurrence: None)
  Receive Date: 20090316
  Receipt Date: 20090306
  Transmission Date: 20090719
  Serious: Yes (Hospitalization)
  Sender: FDA-Public Use
  Company Number: A0773188A

PATIENT
  Age: 55 Year
  Sex: Female
  Weight: 105.5 kg

DRUGS (10)
  1. AVANDIA [Suspect]
     Indication: DIABETES MELLITUS
     Dosage: 4MG TWICE PER DAY
     Route: 048
     Dates: start: 20010501, end: 20070701
  2. STARLIX [Concomitant]
  3. INSULIN [Concomitant]
  4. ATENOLOL [Concomitant]
  5. COREG [Concomitant]
  6. METOPROLOL TARTRATE [Concomitant]
  7. BEXTRA [Concomitant]
  8. SIMVASTATIN [Concomitant]
  9. AMITRIPTYLINE HCL [Concomitant]
  10. PROTONIX [Concomitant]

REACTIONS (8)
  - ACTIVITIES OF DAILY LIVING IMPAIRED [None]
  - ARRHYTHMIA [None]
  - ARTERIOSCLEROSIS [None]
  - CARDIAC VALVE DISEASE [None]
  - CORONARY ARTERY DISEASE [None]
  - MYOCARDIAL INFARCTION [None]
  - NAUSEA [None]
  - PAIN IN EXTREMITY [None]
